FAERS Safety Report 5456281-9 (Version None)
Quarter: 2007Q3

REPORT INFORMATION
  Report Type: 
  Country: None (occurrence: None)
  Receive Date: 20070918
  Receipt Date: 20070330
  Transmission Date: 20080115
  Serious: Yes (Other)
  Sender: FDA-Public Use
  Company Number: US-ASTRAZENECA-2006UW24513

PATIENT
  Age: 27 Year
  Sex: Female
  Weight: 139.1 kg

DRUGS (3)
  1. SEROQUEL [Suspect]
     Indication: BIPOLAR DISORDER
     Route: 048
     Dates: start: 20030101, end: 20060801
  2. OLANZAPINE [Concomitant]
     Dates: start: 20040101
  3. PROZAC [Concomitant]
     Dates: start: 20040101

REACTIONS (4)
  - DIABETES MELLITUS [None]
  - EPILEPSY [None]
  - OBESITY [None]
  - PANCREATITIS [None]
